FAERS Safety Report 5288401-3 (Version None)
Quarter: 2007Q2

REPORT INFORMATION
  Report Type: 
  Country: None (occurrence: None)
  Receive Date: 20070405
  Receipt Date: 20070402
  Transmission Date: 20071010
  Serious: Yes (Other)
  Sender: FDA-Public Use
  Company Number: 2007AC00575

PATIENT
  Age: 3 Year
  Sex: Female

DRUGS (2)
  1. PROPOFOL [Suspect]
     Indication: ANGIOGRAM
  2. PROPOFOL [Suspect]

REACTIONS (6)
  - CARDIAC FAILURE [None]
  - HYPOTENSION [None]
  - METABOLIC ACIDOSIS [None]
  - OVERDOSE [None]
  - PROPOFOL INFUSION SYNDROME [None]
  - TACHYCARDIA [None]
